FAERS Safety Report 5953335-5 (Version None)
Quarter: 2008Q4

REPORT INFORMATION
  Report Type: 
  Country: None (occurrence: None)
  Receive Date: 20081114
  Receipt Date: 20081105
  Transmission Date: 20090506
  Serious: Yes (Life-Threatening, Hospitalization, Other)
  Sender: FDA-Public Use
  Company Number: DK-JNJFOC-20081101503

PATIENT
  Sex: Male

DRUGS (2)
  1. REMICADE [Suspect]
     Dosage: RECEIVED TOTAL OF 10 INFUSIONS
     Route: 042
  2. REMICADE [Suspect]
     Indication: ARTHRITIS
     Dosage: 10 INFUSIONS
     Route: 042

REACTIONS (4)
  - INFUSION RELATED REACTION [None]
  - LIP SWELLING [None]
  - OEDEMA MOUTH [None]
  - RESPIRATORY DISTRESS [None]
